FAERS Safety Report 5147445-2 (Version None)
Quarter: 2006Q4

REPORT INFORMATION
  Report Type: 
  Country: None (occurrence: None)
  Receive Date: 20061109
  Receipt Date: 20061030
  Transmission Date: 20070319
  Serious: Yes (Death)
  Sender: FDA-Public Use
  Company Number: US-ABBOTT-06P-163-0349448-00

PATIENT

DRUGS (6)
  1. ACETAMINOPHEN/HYDROCODONE [Suspect]
     Indication: DRUG USE FOR UNKNOWN INDICATION
     Dosage: INGESTION
     Route: 048
  2. ACETAMINOPHEN/HYDROCODONE [Suspect]
     Route: 051
  3. MEPERIDINE [Suspect]
     Indication: DRUG USE FOR UNKNOWN INDICATION
     Dosage: INGESTION
     Route: 048
  4. MEPERIDINE [Suspect]
     Route: 051
  5. OXYCODONE HCL [Suspect]
     Indication: DRUG USE FOR UNKNOWN INDICATION
     Dosage: INGESTION
     Route: 048
  6. OXYCODONE HCL [Suspect]
     Route: 051

REACTIONS (4)
  - CARDIAC ARREST [None]
  - CARDIO-RESPIRATORY ARREST [None]
  - MEDICATION ERROR [None]
  - RESPIRATORY ARREST [None]
